FAERS Safety Report 19861037 (Version 1)
Quarter: 2021Q3

REPORT INFORMATION
  Report Type: Spontaneous
  Country: CN (occurrence: CN)
  Receive Date: 20210921
  Receipt Date: 20210921
  Transmission Date: 20211014
  Serious: Yes (Other)
  Sender: FDA-Public Use
  Company Number: NVSC2021CN211216

PATIENT

DRUGS (4)
  1. TRAMETINIB [Suspect]
     Active Substance: TRAMETINIB
     Indication: MELANOMA RECURRENT
     Dosage: UNK
     Route: 048
  2. EUTHYROX [Concomitant]
     Active Substance: LEVOTHYROXINE SODIUM
     Indication: PRODUCT USED FOR UNKNOWN INDICATION
     Dosage: UNK
     Route: 048
  3. MEDROL [Concomitant]
     Active Substance: METHYLPREDNISOLONE
     Indication: PRODUCT USED FOR UNKNOWN INDICATION
     Dosage: UNK UNK, QD
     Route: 048
     Dates: end: 20210116
  4. DABRAFENIB [Suspect]
     Active Substance: DABRAFENIB
     Indication: MELANOMA RECURRENT
     Dosage: UNK
     Route: 048

REACTIONS (4)
  - Blood lactate dehydrogenase abnormal [Unknown]
  - Myositis [Unknown]
  - Blood creatine phosphokinase abnormal [Unknown]
  - Hypothyroidism [Unknown]

NARRATIVE: CASE EVENT DATE: 20201015
